FAERS Safety Report 12218543 (Version 1)
Quarter: 2016Q1

REPORT INFORMATION
  Report Type: Other
  Country: GB (occurrence: GB)
  Receive Date: 20160329
  Receipt Date: 20160329
  Transmission Date: 20160526
  Serious: Yes (Hospitalization)
  Sender: FDA-Public Use
  Company Number: GB-MYLANLABS-2016M1012324

PATIENT

DRUGS (23)
  1. CONOTRANE                          /00604301/ [Concomitant]
     Dosage: UNK (APPLY AS NEEDED)
     Dates: start: 20160224, end: 20160302
  2. DUTASTERIDE. [Concomitant]
     Active Substance: DUTASTERIDE
     Dosage: 1 DF, QD (IN THE MORNING)
     Dates: start: 20150728
  3. ISPAGHULA EXTRACT\PSYLLIUM [Concomitant]
     Active Substance: PLANTAGO OVATA SEED\PLANTAGO SEED
     Dosage: 1 DF, QD (TAKE THE CONTENTS OF SACHET - SWALLOW)
     Dates: start: 20151214
  4. LAXIDO                             /06401201/ [Concomitant]
     Active Substance: POLYETHYLENE GLYCOL 3350\POTASSIUM CHLORIDE\SODIUM BICARBONATE\SODIUM CHLORIDE
     Dosage: UNK (USE AS DIRECTED)
     Dates: start: 20150728
  5. AVAMYS [Concomitant]
     Active Substance: FLUTICASONE FUROATE
     Dosage: 2 DF, QD (EACH NOSTRIL)
     Route: 045
     Dates: start: 20160216
  6. E45 [Concomitant]
     Active Substance: LANOLIN\LIGHT MINERAL OIL\PARAFFIN
     Dosage: UNK (APPLY AS NEEDED)
     Dates: start: 20160224
  7. ENTACAPONE. [Suspect]
     Active Substance: ENTACAPONE
     Dosage: UNK
     Dates: start: 20120206
  8. PARACETAMOL [Concomitant]
     Active Substance: ACETAMINOPHEN
     Dosage: UNK (2 AT BEDTIME AND 2 BROKEN INTO HALVES THROUGH)
     Dates: start: 20150728, end: 20160201
  9. ZOPICLONE [Concomitant]
     Active Substance: ZOPICLONE
     Dosage: 1 DF, QOD
     Dates: start: 20150728
  10. WARFARIN SODIUM. [Concomitant]
     Active Substance: WARFARIN SODIUM
     Dosage: UNK (TAKE ACCORDING TO INR RESULT AS DIRECTED)
     Dates: start: 20160302
  11. DOCUSATE SODIUM. [Concomitant]
     Active Substance: DOCUSATE SODIUM
     Dosage: 1 DF, TID (AS DIRECTED)
     Dates: start: 20150728
  12. NYSTAN [Concomitant]
     Active Substance: NYSTATIN
     Dosage: 1 ML, QID
     Dates: start: 20160308
  13. DONEPEZIL HYDROCHLORIDE. [Concomitant]
     Active Substance: DONEPEZIL HYDROCHLORIDE
     Dosage: 1 DF, QD
     Dates: start: 20150728
  14. HYDROCORTISONE. [Concomitant]
     Active Substance: HYDROCORTISONE
     Dosage: 1 DF, BID (WHEN NEEDED)
     Dates: start: 20160302, end: 20160309
  15. MADOPAR [Concomitant]
     Active Substance: BENSERAZIDE HYDROCHLORIDE\LEVODOPA
     Dosage: UNK (ONE TO TWO TWICE A DAY WHEN REQUIRED)
     Dates: start: 20150728
  16. QUETIAPINE [Concomitant]
     Active Substance: QUETIAPINE
     Dosage: 50 MG, QD
     Dates: start: 20150728
  17. QUININE [Concomitant]
     Active Substance: QUININE
     Indication: MUSCLE SPASMS
     Dosage: 1 DF, QD (AT NIGHT, IF NEEDED)
     Dates: start: 20150728
  18. SINEMET [Concomitant]
     Active Substance: CARBIDOPA\LEVODOPA
     Dosage: 1 DF, QD (AT BEDTIME)
     Dates: start: 20150728
  19. BECONASE AQ [Concomitant]
     Active Substance: BECLOMETHASONE DIPROPIONATE MONOHYDRATE
     Dosage: 2 DF, BID (TO BOTH NOSTRILS)
     Route: 045
     Dates: start: 20150728
  20. BRINZOLAMIDE [Concomitant]
     Active Substance: BRINZOLAMIDE
     Dosage: 1 GTT, BID (RIGHT EYE)
     Dates: start: 20150728
  21. CETIRIZINE [Concomitant]
     Active Substance: CETIRIZINE HYDROCHLORIDE
     Dosage: 1 DF, QD
     Dates: start: 20160216
  22. DUOTRAV [Concomitant]
     Active Substance: TIMOLOL MALEATE\TRAVOPROST
     Dosage: UNK (AS DIRECTED BY CONSULTANT)
     Dates: start: 20150728
  23. LACTULOSE. [Concomitant]
     Active Substance: LACTULOSE
     Dosage: 15 ML, BID
     Dates: start: 20160201

REACTIONS (1)
  - Liver disorder [Recovering/Resolving]

NARRATIVE: CASE EVENT DATE: 20160104
